FAERS Safety Report 8784596 (Version 2)
Quarter: 2012Q4

REPORT INFORMATION
  Report Type: Spontaneous
  Country: US (occurrence: None)
  Receive Date: 20120831
  Receipt Date: 20121001
  Transmission Date: 20130627
  Serious: Yes (Death)
  Sender: FDA-Public Use
  Company Number: ACO_31685_2012

PATIENT
  Age: 72 Year
  Sex: Male

DRUGS (1)
  1. AMPYRA [Suspect]
     Indication: DRUG USE FOR UNKNOWN INDICATION
     Dates: start: 20110714

REACTIONS (1)
  - Cardiac arrest [None]
